FAERS Safety Report 23052428 (Version 2)
Quarter: 2023Q4

REPORT INFORMATION
  Report Type: Spontaneous
  Country: US (occurrence: US)
  Receive Date: 20231011
  Receipt Date: 20231020
  Transmission Date: 20240110
  Serious: Yes (Other)
  Sender: FDA-Public Use
  Company Number: US-AUROBINDO-AUR-APL-2023-062408

PATIENT
  Age: 68 Year
  Sex: Male
  Weight: 68.027 kg

DRUGS (1)
  1. CETIRIZINE HYDROCHLORIDE [Suspect]
     Active Substance: CETIRIZINE HYDROCHLORIDE
     Indication: Hypersensitivity
     Dosage: UNK UNK, ONCE A DAY  ONCE EVERY 24 HOURS (ONCE A DAY)
     Route: 065
     Dates: start: 20230930

REACTIONS (6)
  - Foreign body in throat [Recovering/Resolving]
  - Cough [Recovering/Resolving]
  - Pulmonary pain [Recovering/Resolving]
  - Product size issue [Unknown]
  - Product label issue [Unknown]
  - Product use complaint [Unknown]

NARRATIVE: CASE EVENT DATE: 20230930
